FAERS Safety Report 7020210-7 (Version None)
Quarter: 2010Q3

REPORT INFORMATION
  Report Type: 
  Country: None (occurrence: None)
  Receive Date: 20100929
  Receipt Date: 20100916
  Transmission Date: 20110219
  Serious: Yes (Hospitalization, Other)
  Sender: FDA-Public Use
  Company Number: PHHO2010US14360

PATIENT
  Sex: Female
  Weight: 102.7 kg

DRUGS (15)
  1. TEGRETOL [Suspect]
     Indication: CONVULSION
     Dosage: UNK
     Route: 048
     Dates: start: 20070507, end: 20070515
  2. PACLITAXEL [Suspect]
     Indication: NON-SMALL CELL LUNG CANCER
     Dosage: UNK
     Dates: start: 20070508, end: 20070801
  3. CARBOPLATIN [Suspect]
     Indication: NON-SMALL CELL LUNG CANCER
     Dosage: UNK
     Dates: start: 20070508, end: 20070801
  4. AMOXICILLIN [Concomitant]
  5. MULTI-VITAMINS [Concomitant]
  6. DETROL [Concomitant]
  7. GLUCOSAMINE W/CHONDROITIN [Concomitant]
  8. FELDENE [Concomitant]
  9. DYAZIDE [Concomitant]
  10. ASPIRIN [Concomitant]
  11. NAPROXEN [Concomitant]
  12. MORPHINE [Concomitant]
  13. TYLENOL (CAPLET) [Concomitant]
  14. TRAMADOL [Concomitant]
  15. TUMS [Concomitant]

REACTIONS (11)
  - ASTHENIA [None]
  - DECREASED APPETITE [None]
  - DIZZINESS [None]
  - DYSGEUSIA [None]
  - FATIGUE [None]
  - HYPONATRAEMIA [None]
  - HYPOPHAGIA [None]
  - NAUSEA [None]
  - PARTIAL SEIZURES [None]
  - URINE OUTPUT DECREASED [None]
  - VOMITING [None]
